FAERS Safety Report 6271225-8 (Version None)
Quarter: 2009Q3

REPORT INFORMATION
  Report Type: 
  Country: None (occurrence: None)
  Receive Date: 20090717
  Receipt Date: 20090713
  Transmission Date: 20100115
  Serious: Yes (Death, Hospitalization)
  Sender: FDA-Public Use
  Company Number: JP-JNJFOC-20090105635

PATIENT
  Sex: Male
  Weight: 51 kg

DRUGS (15)
  1. ITRIZOLE [Suspect]
     Indication: DRUG USE FOR UNKNOWN INDICATION
     Route: 042
  2. ITRIZOLE [Suspect]
     Indication: FEBRILE NEUTROPENIA
     Route: 048
  3. DECADRON [Suspect]
     Indication: NON-HODGKIN'S LYMPHOMA
     Route: 042
  4. VFEND [Suspect]
     Indication: FEBRILE NEUTROPENIA
     Route: 048
  5. MEROPENEM TRIHYDRATE [Suspect]
     Indication: FEBRILE NEUTROPENIA
     Route: 042
  6. CARBENIN [Suspect]
     Indication: FEBRILE NEUTROPENIA
     Route: 042
  7. SOLU-MEDROL [Suspect]
     Indication: NON-HODGKIN'S LYMPHOMA
     Route: 042
  8. FLUDARABINE PHOSPHATE [Concomitant]
     Indication: NON-HODGKIN'S LYMPHOMA
     Route: 048
  9. CYCLOPHOSPHAMIDE [Concomitant]
     Indication: NON-HODGKIN'S LYMPHOMA
     Route: 048
  10. MAGNESIUM OXIDE [Concomitant]
     Indication: CONSTIPATION
     Route: 048
  11. AMOBAN [Concomitant]
     Indication: INSOMNIA
     Route: 048
  12. BAKTAR [Concomitant]
     Indication: PROPHYLAXIS
     Dosage: 0.5 DF
     Route: 048
  13. MAXIPIME [Concomitant]
     Indication: FEBRILE NEUTROPENIA
     Route: 042
  14. NEUTROGIN [Concomitant]
     Indication: NEUTROPENIA
     Route: 042
  15. CIPROFLOXACIN HYDROCHLORIDE [Concomitant]
     Indication: FEBRILE NEUTROPENIA
     Route: 042

REACTIONS (11)
  - BLOOD ALKALINE PHOSPHATASE INCREASED [None]
  - BLOOD CREATININE INCREASED [None]
  - BLOOD UREA INCREASED [None]
  - CYSTITIS HAEMORRHAGIC [None]
  - HEPATIC FUNCTION ABNORMAL [None]
  - HYPERCHLORAEMIA [None]
  - HYPERKALAEMIA [None]
  - LYMPHOMA [None]
  - PNEUMONIA KLEBSIELLA [None]
  - RENAL DISORDER [None]
  - WHITE BLOOD CELL COUNT DECREASED [None]
